FAERS Safety Report 8094738-5 (Version None)
Quarter: 2012Q1

REPORT INFORMATION
  Report Type: 
  Country: None (occurrence: None)
  Receive Date: 20120129
  Receipt Date: 20111208
  Transmission Date: 20120608
  Serious: No
  Sender: FDA-Public Use
  Company Number: US-ABBOTT-11P-163-0882738-00

PATIENT
  Sex: Female

DRUGS (3)
  1. HUMIRA [Suspect]
     Indication: RHEUMATOID ARTHRITIS
     Dates: start: 20111001
  2. AMBIEN [Suspect]
     Indication: SLEEP DISORDER THERAPY
     Dates: start: 20110701
  3. PROZAC [Suspect]
     Indication: ANXIETY
     Dates: start: 20111001

REACTIONS (3)
  - WEIGHT DECREASED [None]
  - FEELING ABNORMAL [None]
  - POOR QUALITY SLEEP [None]
